FAERS Safety Report 4607620-X (Version None)
Quarter: 2005Q1

REPORT INFORMATION
  Report Type: 
  Country: None (occurrence: None)
  Receive Date: 20050314
  Receipt Date: 20050304
  Transmission Date: 20050727
  Serious: Yes (Other)
  Sender: FDA-Public Use
  Company Number: PHBS2005NL03219

PATIENT
  Age: 79 Year
  Sex: Female

DRUGS (1)
  1. GLEEVEC [Suspect]
     Route: 048

REACTIONS (5)
  - AMNESIA [None]
  - DELIRIUM [None]
  - PERSONALITY CHANGE [None]
  - SPEECH DISORDER [None]
  - SWOLLEN TONGUE [None]
